FAERS Safety Report 17884276 (Version 1)
Quarter: 2020Q2

REPORT INFORMATION
  Report Type: Spontaneous
  Country: CA (occurrence: CA)
  Receive Date: 20200611
  Receipt Date: 20200611
  Transmission Date: 20200714
  Serious: Yes (Hospitalization)
  Sender: FDA-Public Use
  Company Number: CA-ACCORD-184575

PATIENT
  Age: 74 Year
  Sex: Male

DRUGS (17)
  1. MAGNESIUM CITRATE. [Concomitant]
     Active Substance: MAGNESIUM CITRATE
  2. METOPROLOL. [Concomitant]
     Active Substance: METOPROLOL
  3. SENNA ALEXANDRINA [Concomitant]
     Active Substance: SENNA LEAF
  4. MAGNESIUM HYDROXIDE. [Concomitant]
     Active Substance: MAGNESIUM HYDROXIDE
  5. FLUOROURACIL. [Suspect]
     Active Substance: FLUOROURACIL
     Indication: COLORECTAL CANCER
     Dosage: 1 EVERY 14 DAYS
     Route: 042
  6. ROSUVASTATIN/ROSUVASTATIN CALCIUM [Concomitant]
     Active Substance: ROSUVASTATIN CALCIUM
  7. LACTOBACILLUS ACIDOPHILUS [Concomitant]
     Active Substance: LACTOBACILLUS ACIDOPHILUS
  8. OXALIPLATIN. [Suspect]
     Active Substance: OXALIPLATIN
     Indication: COLORECTAL CANCER
     Dosage: 1 EVERY 14 DAYS
     Route: 042
  9. PARACETAMOL [Concomitant]
     Active Substance: ACETAMINOPHEN
  10. GLICLAZIDE [Concomitant]
     Active Substance: GLICLAZIDE
  11. PANTOPRAZOLE [Concomitant]
     Active Substance: PANTOPRAZOLE
  12. JANUMET [Concomitant]
     Active Substance: METFORMIN HYDROCHLORIDE\SITAGLIPTIN PHOSPHATE
  13. LEUCOVORIN. [Concomitant]
     Active Substance: LEUCOVORIN
  14. MACROGOL/POTASSIUM CHLORIDE/SODIUM BICARBONATE/SODIUM CHLORIDE/SODIUM SULFATE ANHYDROUS [Concomitant]
  15. FELODIPINE. [Concomitant]
     Active Substance: FELODIPINE
  16. DEXAMETHASONE. [Concomitant]
     Active Substance: DEXAMETHASONE
  17. GRANISETRON [Concomitant]
     Active Substance: GRANISETRON

REACTIONS (4)
  - Pyrexia [Recovered/Resolved]
  - Blood lactate dehydrogenase increased [Recovered/Resolved]
  - White blood cell count increased [Recovered/Resolved]
  - Hypotension [Recovered/Resolved]
